FAERS Safety Report 19768776 (Version 1)
Quarter: 2021Q3

REPORT INFORMATION
  Report Type: Report from Study
  Country: None (occurrence: US)
  Receive Date: 20210830
  Receipt Date: 20210830
  Transmission Date: 20211014
  Serious: Yes (Hospitalization, Disabling, Other)
  Sender: FDA-Public Use
  Company Number: US-ABBVIE-21K-163-4057701-00

PATIENT
  Age: 56 Year
  Sex: Male

DRUGS (3)
  1. COVID?19 VACCINE [Concomitant]
     Indication: COVID-19 IMMUNISATION
     Dosage: FIRST DOSE
  2. COVID?19 VACCINE [Concomitant]
     Dosage: SECOND DOSE
  3. HUMIRA [Suspect]
     Active Substance: ADALIMUMAB
     Indication: PSORIASIS
     Route: 058
     Dates: end: 2011

REACTIONS (6)
  - Atrial fibrillation [Unknown]
  - Myocardial infarction [Unknown]
  - Deafness unilateral [Recovered/Resolved]
  - Infection [Unknown]
  - Urine analysis abnormal [Unknown]
  - Nephrolithiasis [Unknown]

NARRATIVE: CASE EVENT DATE: 201103
